FAERS Safety Report 8155208-9 (Version None)
Quarter: 2012Q1

REPORT INFORMATION
  Report Type: 
  Country: None (occurrence: None)
  Receive Date: 20120222
  Receipt Date: 20120214
  Transmission Date: 20120608
  Serious: Yes (Hospitalization)
  Sender: FDA-Public Use
  Company Number: JP-BRISTOL-MYERS SQUIBB COMPANY-16399545

PATIENT

DRUGS (1)
  1. TAXOL [Suspect]
     Indication: OVARIAN CANCER

REACTIONS (1)
  - CYSTITIS HAEMORRHAGIC [None]
